FAERS Safety Report 23521861 (Version 1)
Quarter: 2024Q1

REPORT INFORMATION
  Report Type: Spontaneous
  Country: BG (occurrence: BG)
  Receive Date: 20240214
  Receipt Date: 20240214
  Transmission Date: 20240410
  Serious: Yes (Other)
  Sender: FDA-Public Use
  Company Number: BG-009507513-2311BGR000945

PATIENT
  Age: 74 Year
  Sex: Male

DRUGS (4)
  1. CARBOPLATIN [Suspect]
     Active Substance: CARBOPLATIN
     Indication: Lung neoplasm malignant
     Dosage: AREA UNDER THE CURVE (AUC) 5, Q3W
     Route: 065
  2. DENOSUMAB [Suspect]
     Active Substance: DENOSUMAB
     Indication: Lung neoplasm malignant
     Dosage: 120 MILLIGRAM, EVERY 4 WEEKS
     Route: 065
  3. KEYTRUDA [Suspect]
     Active Substance: PEMBROLIZUMAB
     Indication: Lung neoplasm malignant
     Dosage: 200 MILLIGRAM, Q3W
     Route: 065
  4. PEMETREXED [Suspect]
     Active Substance: PEMETREXED
     Indication: Lung neoplasm malignant
     Dosage: 500 MILLIGRAM/SQ. METER, Q3W
     Route: 065

REACTIONS (13)
  - Cardioversion [Unknown]
  - Pneumonitis [Unknown]
  - White blood cell count decreased [Unknown]
  - Haemoglobin decreased [Unknown]
  - Platelet count decreased [Unknown]
  - N-terminal prohormone brain natriuretic peptide increased [Recovering/Resolving]
  - Inflammatory marker increased [Unknown]
  - Myocardial strain imaging abnormal [Recovering/Resolving]
  - Bone lesion [Unknown]
  - Ejection fraction decreased [Recovering/Resolving]
  - Osteosclerosis [Unknown]
  - Pyrexia [Unknown]
  - Therapy partial responder [Unknown]
